FAERS Safety Report 7611805-8 (Version None)
Quarter: 2011Q3

REPORT INFORMATION
  Report Type: 
  Country: None (occurrence: None)
  Receive Date: 20110715
  Receipt Date: 20110707
  Transmission Date: 20111222
  Serious: Yes (Hospitalization, Disabling)
  Sender: FDA-Public Use
  Company Number: US-PFIZER INC-2011116370

PATIENT
  Sex: Female

DRUGS (7)
  1. PANTOPRAZOLE [Suspect]
     Indication: PRODUCT USED FOR UNKNOWN INDICATION
     Route: 065
  2. LEVAQUIN [Suspect]
     Indication: GASTROENTERITIS
  3. AMOXICILLIN [Concomitant]
     Indication: PSORIASIS
     Route: 065
  4. VANCOMYCIN HYDROCHLORIDE [Concomitant]
     Indication: STAPHYLOCOCCAL INFECTION
     Route: 042
  5. IBUPROFEN [Suspect]
  6. LEVAQUIN [Suspect]
     Indication: BACTERIAL INFECTION
  7. LEVAQUIN [Suspect]
     Indication: URINARY TRACT INFECTION
     Dosage: 500 MG, UNK
     Route: 042

REACTIONS (6)
  - PARALYSIS [None]
  - CARDIAC FAILURE CONGESTIVE [None]
  - STEVENS-JOHNSON SYNDROME [None]
  - RENAL FAILURE [None]
  - ANAEMIA [None]
  - CEREBROVASCULAR ACCIDENT [None]
